FAERS Safety Report 6343568-0 (Version None)
Quarter: 2009Q3

REPORT INFORMATION
  Report Type: 
  Country: None (occurrence: None)
  Receive Date: 20090903
  Receipt Date: 20090821
  Transmission Date: 20100115
  Serious: Yes (Hospitalization)
  Sender: FDA-Public Use
  Company Number: 8050794

PATIENT
  Age: 37 Year
  Sex: Female
  Weight: 54.4 kg

DRUGS (2)
  1. CIMZIA [Suspect]
     Indication: CROHN'S DISEASE
     Dosage: 400 MG SC
     Route: 058
     Dates: start: 20050101
  2. PRILOSEC [Concomitant]

REACTIONS (2)
  - DEHYDRATION [None]
  - INTESTINAL OBSTRUCTION [None]
